FAERS Safety Report 8940634 (Version 2)
Quarter: 2013Q1

REPORT INFORMATION
  Report Type: Spontaneous
  Country: DK (occurrence: CA)
  Receive Date: 20121203
  Receipt Date: 20130225
  Transmission Date: 20140127
  Serious: Yes (Death)
  Sender: FDA-Public Use
  Company Number: CA-FRI-1000040749

PATIENT
  Sex: Male
  Weight: 77 kg

DRUGS (3)
  1. CELEXA [Suspect]
     Indication: DEPRESSION
     Dosage: 20 MG
     Route: 048
     Dates: start: 2002, end: 2002
  2. ZYPREXA [Suspect]
     Indication: AFFECTIVE DISORDER
     Dosage: 5 MG
     Route: 048
     Dates: start: 2002, end: 2002
  3. ATIVAN SUBLINGUAL [Concomitant]
     Dosage: 1 MG
     Route: 060
     Dates: start: 2002, end: 2002

REACTIONS (2)
  - Hypertrophic cardiomyopathy [Fatal]
  - Off label use [Fatal]
